FAERS Safety Report 8915100 (Version 4)
Quarter: 2013Q1

REPORT INFORMATION
  Report Type: Report from Study
  Country: CH (occurrence: CH)
  Receive Date: 20121119
  Receipt Date: 20130308
  Transmission Date: 20140127
  Serious: Yes (Hospitalization)
  Sender: FDA-Public Use
  Company Number: CH-BRISTOL-MYERS SQUIBB COMPANY-17128745

PATIENT
  Age: 59 Year
  Sex: Male

DRUGS (3)
  1. CETUXIMAB [Suspect]
     Indication: OESOPHAGEAL CARCINOMA
     Dosage: INF-RECENT DOSE 21SEP12,5OCT12
     Route: 042
     Dates: start: 20120321
  2. CISPLATIN [Suspect]
     Indication: OESOPHAGEAL CARCINOMA
     Dosage: INF?RECENT DOSE 1JUN12
     Route: 042
     Dates: start: 20120321
  3. DOCETAXEL [Suspect]
     Indication: OESOPHAGEAL CARCINOMA
     Dosage: INF?RECENT DOSE 1JUN12
     Route: 042
     Dates: start: 20120321

REACTIONS (1)
  - Wound complication [Recovered/Resolved]
